FAERS Safety Report 4747971-1 (Version None)
Quarter: 2005Q3

REPORT INFORMATION
  Report Type: 
  Country: None (occurrence: None)
  Receive Date: 20050817
  Receipt Date: 20050817
  Transmission Date: 20060218
  Serious: Yes (Other)
  Sender: FDA-Public Use
  Company Number: None

PATIENT
  Sex: Male
  Weight: 111 kg

DRUGS (5)
  1. CETUXIMAB [Suspect]
     Indication: NON-SMALL CELL LUNG CANCER
     Dosage: SEE IMAGE
     Dates: start: 20050621
  2. GEMZAR [Suspect]
     Dosage: SEE IMAGE
     Dates: start: 20050621
  3. ARANESP [Concomitant]
  4. TAXOL [Concomitant]
  5. CARBOPLATIN [Concomitant]

REACTIONS (25)
  - ABDOMINAL DISTENSION [None]
  - ACUTE PRERENAL FAILURE [None]
  - ANAEMIA OF CHRONIC DISEASE [None]
  - ATRIAL FLUTTER [None]
  - BALANCE DISORDER [None]
  - CHRONIC OBSTRUCTIVE PULMONARY DISEASE [None]
  - CONSTIPATION [None]
  - DEHYDRATION [None]
  - DIZZINESS [None]
  - DYSPNOEA [None]
  - ENTEROCOCCAL INFECTION [None]
  - EPISTAXIS [None]
  - FAECALOMA [None]
  - FALL [None]
  - FEELING COLD [None]
  - FLUID OVERLOAD [None]
  - FOOT FRACTURE [None]
  - PANCYTOPENIA [None]
  - PNEUMONIA STAPHYLOCOCCAL [None]
  - PNEUMONITIS [None]
  - PULMONARY HAEMORRHAGE [None]
  - PYREXIA [None]
  - RESPIRATORY FAILURE [None]
  - RESPIRATORY TRACT HAEMORRHAGE [None]
  - STAPHYLOCOCCAL INFECTION [None]
